FAERS Safety Report 14929945 (Version 2)
Quarter: 2018Q3

REPORT INFORMATION
  Report Type: Spontaneous
  Country: US (occurrence: US)
  Receive Date: 20180523
  Receipt Date: 20180712
  Transmission Date: 20181010
  Serious: Yes (Other)
  Sender: FDA-Public Use
  Company Number: US-ACTELION-A-NJ2018-172353

PATIENT
  Age: 67 Year
  Sex: Male
  Weight: 45.35 kg

DRUGS (2)
  1. ELIQUIS [Concomitant]
     Active Substance: APIXABAN
  2. TRACLEER [Suspect]
     Active Substance: BOSENTAN
     Indication: PULMONARY ARTERIAL HYPERTENSION
     Dosage: 62.5 MG, BID
     Route: 048

REACTIONS (8)
  - Lethargy [Unknown]
  - Hepatic cirrhosis [Unknown]
  - Hernia [Unknown]
  - Asthenia [Unknown]
  - Ascites [Unknown]
  - Malaise [Unknown]
  - Decreased appetite [Unknown]
  - Vomiting [Unknown]
